FAERS Safety Report 24686979 (Version 1)
Quarter: 2024Q4

REPORT INFORMATION
  Report Type: Spontaneous
  Country: CN (occurrence: CN)
  Receive Date: 20241202
  Receipt Date: 20241202
  Transmission Date: 20250115
  Serious: Yes (Other)
  Sender: OTSUKA
  Company Number: CN-OTSUKA-2024_032297

PATIENT
  Age: 11 Year
  Sex: Male
  Weight: 33.2 kg

DRUGS (3)
  1. BUSULFEX [Suspect]
     Active Substance: BUSULFAN
     Indication: Acute myeloid leukaemia
     Dosage: 34 MG, QID ( INTRAVENOUS DRIP)
     Route: 042
     Dates: start: 20241014, end: 20241016
  2. METHOTREXATE [Suspect]
     Active Substance: METHOTREXATE
     Indication: Acute myeloid leukaemia
     Dosage: 15 MG, QD (INTRAVENOUS DRIP)
     Route: 042
     Dates: start: 20241024, end: 20241024
  3. METHOTREXATE [Suspect]
     Active Substance: METHOTREXATE
     Dosage: 0.12 G, QD
     Route: 042
     Dates: start: 20241026

REACTIONS (2)
  - Mouth ulceration [Recovering/Resolving]
  - Product use in unapproved indication [Unknown]

NARRATIVE: CASE EVENT DATE: 20241014
